FAERS Safety Report 18688691 (Version 1)
Quarter: 2020Q4

REPORT INFORMATION
  Report Type: Spontaneous
  Country: US (occurrence: US)
  Receive Date: 20201231
  Receipt Date: 20201231
  Transmission Date: 20210114
  Serious: Yes (Other)
  Sender: FDA-Public Use
  Company Number: US-SA-2020SA374301

PATIENT

DRUGS (1)
  1. ZANTAC [Suspect]
     Active Substance: RANITIDINE HYDROCHLORIDE
     Indication: DYSPEPSIA
     Dosage: UNK, QD
     Dates: start: 200001, end: 201401

REACTIONS (7)
  - Lung neoplasm malignant [Unknown]
  - Uterine cancer [Unknown]
  - Hepatic cancer [Unknown]
  - Bladder cancer [Unknown]
  - Gastric cancer [Unknown]
  - Brain neoplasm malignant [Unknown]
  - Endometrial cancer [Unknown]

NARRATIVE: CASE EVENT DATE: 20000101
